FAERS Safety Report 8972301 (Version 1)
Quarter: 2012Q4

REPORT INFORMATION
  Report Type: 
  Country: US (occurrence: US)
  Receive Date: 20121218
  Receipt Date: 20121218
  Transmission Date: 20130627
  Serious: Yes (Other)
  Sender: FDA-Public Use
  Company Number: CHPA2012US025219

PATIENT
  Age: 55 Year
  Sex: Female

DRUGS (4)
  1. EXCEDRIN EXTRA STRENGTH [Suspect]
     Indication: PAIN
     Dosage: 2 DF, PRN
     Route: 048
  2. EXCEDRIN PM [Suspect]
     Indication: INSOMNIA
     Dosage: 2 DF, FOUR TIMES A WEEK
     Route: 048
  3. EXCEDRIN MIGRAINE [Suspect]
     Indication: PAIN
     Dosage: 2 DF, PRN
     Route: 048
  4. METOPROLOL [Concomitant]
     Indication: BLOOD CHOLESTEROL INCREASED
     Dosage: Unk, Unk

REACTIONS (2)
  - Hypertension [Not Recovered/Not Resolved]
  - Anxiety [Not Recovered/Not Resolved]
